FAERS Safety Report 9008174 (Version 1)
Quarter: 2012Q4

REPORT INFORMATION
  Report Type: Spontaneous
  Country: HR (occurrence: None)
  Receive Date: 20121227
  Receipt Date: 20121227
  Transmission Date: 20130627
  Serious: Yes (Disabling)
  Sender: FDA-Public Use
  Company Number: 7182351

PATIENT
  Age: 28 Year
  Sex: Female

DRUGS (2)
  1. EUTHYROX [Suspect]
     Route: 048
     Dates: start: 20120816, end: 20120906
  2. IBUPROFEN (IBUPROFEN) [Concomitant]

REACTIONS (4)
  - Activities of daily living impaired [None]
  - Insomnia [None]
  - Agitation [None]
  - Headache [None]
